FAERS Safety Report 9002132 (Version 1)
Quarter: 2013Q1

REPORT INFORMATION
  Report Type: Spontaneous
  Country: US (occurrence: None)
  Receive Date: 20130103
  Receipt Date: 20130103
  Transmission Date: 20140127
  Serious: Yes (Life-Threatening)
  Sender: FDA-Public Use
  Company Number: None

PATIENT
  Sex: Male

DRUGS (2)
  1. PHENYTOIN [Suspect]
     Dosage: 100 MG  TID  PO?SINCE AROUND 1999 OR 2000
     Route: 048
  2. TOPIRAMATE [Suspect]
     Dosage: 100 MG  BID  PO?SINCE AROUND 1999 OR 2000
     Route: 048

REACTIONS (2)
  - Convulsion [None]
  - Condition aggravated [None]
